FAERS Safety Report 7207696-X (Version None)
Quarter: 2011Q1

REPORT INFORMATION
  Report Type: 
  Country: None (occurrence: None)
  Receive Date: 20110103
  Receipt Date: 20101227
  Transmission Date: 20110831
  Serious: Yes (Disabling, Other)
  Sender: FDA-Public Use
  Company Number: US-PFIZER INC-2010179553

PATIENT
  Sex: Male
  Weight: 86.168 kg

DRUGS (7)
  1. BRIMONIDINE [Concomitant]
     Indication: RETINAL DETACHMENT
     Dosage: UNK
  2. NAPHAZOLINE [Concomitant]
     Indication: RETINAL DETACHMENT
     Dosage: UNK
  3. VALSARTAN [Concomitant]
     Indication: HYPERTENSION
     Dosage: 160 MG, 1X/DAY
     Dates: start: 20050101
  4. TOVIAZ [Suspect]
     Indication: HYPERTONIC BLADDER
     Dosage: 4 MG, 1X/DAY
     Route: 048
  5. TOVIAZ [Suspect]
     Dosage: 8 MG, 1X/DAY
     Route: 048
     Dates: start: 20101015, end: 20101226
  6. TRAVATAN [Concomitant]
     Indication: RETINAL DETACHMENT
     Dosage: UNK
  7. TIMOLOL [Concomitant]
     Indication: RETINAL DETACHMENT
     Dosage: UNK

REACTIONS (4)
  - DRUG INEFFECTIVE [None]
  - VISION BLURRED [None]
  - VISUAL IMPAIRMENT [None]
  - EYE DISORDER [None]
